FAERS Safety Report 9269038 (Version 11)
Quarter: 2018Q4

REPORT INFORMATION
  Report Type: Report from Study
  Country: CA (occurrence: CA)
  Receive Date: 20130503
  Receipt Date: 20181015
  Transmission Date: 20190205
  Serious: Yes (Hospitalization, Other)
  Sender: FDA-Public Use
  Company Number: CA-ROCHE-1220834

PATIENT
  Age: 55 Year
  Sex: Female
  Weight: 80.81 kg

DRUGS (25)
  1. PREDNISONE. [Suspect]
     Active Substance: PREDNISONE
     Route: 065
     Dates: start: 20130923, end: 201403
  2. ATIVAN [Concomitant]
     Active Substance: LORAZEPAM
     Dosage: AS REQUIRED
     Route: 065
  3. DIPHENHYDRAMINE HCL [Concomitant]
     Active Substance: DIPHENHYDRAMINE HYDROCHLORIDE
     Indication: PREMEDICATION
     Route: 048
     Dates: start: 20091009
  4. RISPERIDONE. [Concomitant]
     Active Substance: RISPERIDONE
  5. PREVNAR 13 [Concomitant]
     Active Substance: PNEUMOCOCCAL 13-VALENT CONJUGATE VACCINE
  6. SERTRALINE [Concomitant]
     Active Substance: SERTRALINE HYDROCHLORIDE
  7. ADVIL [Concomitant]
     Active Substance: IBUPROFEN
  8. LORAZEPAM. [Concomitant]
     Active Substance: LORAZEPAM
     Route: 065
  9. TYLENOL ARTHRITIS PAIN [Concomitant]
     Active Substance: ACETAMINOPHEN
     Indication: PAIN
     Dosage: 2 TABLETS BEFORE BED
     Route: 065
     Dates: start: 20130225
  10. PREDNISONE. [Suspect]
     Active Substance: PREDNISONE
     Route: 065
     Dates: start: 20130429
  11. PANTOLOC [Concomitant]
     Active Substance: PANTOPRAZOLE SODIUM
  12. LAMOTRIGINE. [Concomitant]
     Active Substance: LAMOTRIGINE
     Indication: SEIZURE
     Route: 065
     Dates: start: 20130429
  13. METHYLPREDNISOLONE. [Concomitant]
     Active Substance: METHYLPREDNISOLONE
     Indication: PREMEDICATION
     Route: 042
     Dates: start: 20091009
  14. FLU VACCINE [Concomitant]
     Active Substance: INFLUENZA VIRUS VACCINE
  15. TYLENOL [Concomitant]
     Active Substance: ACETAMINOPHEN
  16. CLONAZEPAM. [Concomitant]
     Active Substance: CLONAZEPAM
  17. RITALIN [Concomitant]
     Active Substance: METHYLPHENIDATE HYDROCHLORIDE
  18. PLAQUENIL [Concomitant]
     Active Substance: HYDROXYCHLOROQUINE SULFATE
     Route: 065
     Dates: start: 20130225
  19. ACETAMINOPHEN. [Concomitant]
     Active Substance: ACETAMINOPHEN
     Indication: PREMEDICATION
     Route: 048
     Dates: start: 20091009
  20. PREDNISONE. [Suspect]
     Active Substance: PREDNISONE
     Indication: INFLAMMATION
     Dosage: DRUG STOPPED IN MARCH/2014
     Route: 065
     Dates: start: 20130315
  21. WELLBUTRIN [Concomitant]
     Active Substance: BUPROPION HYDROCHLORIDE
     Route: 065
     Dates: start: 20130429
  22. TYLENOL ARTHRITIS PAIN [Concomitant]
     Active Substance: ACETAMINOPHEN
     Dosage: AS REQUIRED
     Route: 065
     Dates: start: 20131216
  23. RITUXAN [Suspect]
     Active Substance: RITUXIMAB
     Indication: SYSTEMIC LUPUS ERYTHEMATOSUS
     Dosage: LAST DOSE WAS ON 28/AUG/2013.
     Route: 042
     Dates: start: 20091009
  24. RITUXAN [Suspect]
     Active Substance: RITUXIMAB
     Indication: CENTRAL NERVOUS SYSTEM LUPUS
     Route: 042
     Dates: start: 201211
  25. ATIVAN [Concomitant]
     Active Substance: LORAZEPAM

REACTIONS (25)
  - Bronchitis [Recovered/Resolved]
  - Off label use [Unknown]
  - Blood pressure diastolic decreased [Unknown]
  - Cushing^s syndrome [Unknown]
  - Pneumonitis [Recovered/Resolved]
  - Inflammation [Unknown]
  - Lymphadenopathy [Recovered/Resolved]
  - Blood pressure diastolic decreased [Unknown]
  - Intentional product use issue [Unknown]
  - Blood pressure systolic increased [Unknown]
  - Cystitis [Not Recovered/Not Resolved]
  - Pneumonia [Unknown]
  - Systemic lupus erythematosus [Not Recovered/Not Resolved]
  - Viral infection [Recovered/Resolved]
  - Neutrophil count increased [Unknown]
  - Lymphocyte count decreased [Unknown]
  - Blood pressure fluctuation [Unknown]
  - Basal cell carcinoma [Not Recovered/Not Resolved]
  - Insomnia [Unknown]
  - Weight decreased [Not Recovered/Not Resolved]
  - Pneumonia [Recovered/Resolved]
  - Lymph node pain [Recovered/Resolved]
  - Vitamin D decreased [Not Recovered/Not Resolved]
  - Depression [Recovering/Resolving]
  - Blood albumin increased [Unknown]

NARRATIVE: CASE EVENT DATE: 201209
